FAERS Safety Report 18287595 (Version 1)
Quarter: 2020Q3

REPORT INFORMATION
  Report Type: Spontaneous
  Country: US (occurrence: US)
  Receive Date: 20200918
  Receipt Date: 20200918
  Transmission Date: 20201103
  Serious: No
  Sender: FDA-Public Use
  Company Number: None

PATIENT
  Age: 41 Year
  Sex: Female

DRUGS (1)
  1. HUMIRA [Suspect]
     Active Substance: ADALIMUMAB
     Indication: RHEUMATOID ARTHRITIS
     Dosage: IN THE ABDOMEN OR THIGH ROTATING INJECTION SITES AS
     Route: 058
     Dates: start: 202007

REACTIONS (3)
  - Injection site pain [None]
  - Herpes zoster [None]
  - Injection site pruritus [None]
